FAERS Safety Report 8876718 (Version 1)
Quarter: 2012Q4

REPORT INFORMATION
  Report Type: 
  Country: US (occurrence: US)
  Receive Date: 20121023
  Receipt Date: 20121023
  Transmission Date: 20130627
  Serious: No
  Sender: FDA-Public Use
  Company Number: US-AMGEN-USASP2012009904

PATIENT
  Age: 56 Year
  Sex: Male

DRUGS (2)
  1. ENBREL [Suspect]
     Indication: ANKYLOSING SPONDYLITIS
     Dosage: 50 mg, qwk
     Dates: start: 20120130
  2. ENBREL [Suspect]
     Indication: PSORIASIS

REACTIONS (5)
  - Initial insomnia [Recovered/Resolved]
  - Insomnia [Recovered/Resolved]
  - Rhinorrhoea [Not Recovered/Not Resolved]
  - Photophobia [Not Recovered/Not Resolved]
  - Nasopharyngitis [Not Recovered/Not Resolved]
